FAERS Safety Report 10267512 (Version 1)
Quarter: 2014Q2

REPORT INFORMATION
  Report Type: Spontaneous
  Country: US (occurrence: US)
  Receive Date: 20140630
  Receipt Date: 20140630
  Transmission Date: 20141212
  Serious: No
  Sender: FDA-Public Use
  Company Number: US-PFIZER INC-2014176257

PATIENT
  Age: 39 Year
  Sex: Female
  Weight: 59.41 kg

DRUGS (1)
  1. LYRICA [Suspect]
     Indication: FIBROMYALGIA
     Dosage: 150 MG, 2X/DAY
     Dates: start: 2009, end: 201303

REACTIONS (2)
  - Pain [Unknown]
  - Activities of daily living impaired [Unknown]
